FAERS Safety Report 10018471 (Version 1)
Quarter: 2014Q1

REPORT INFORMATION
  Report Type: Spontaneous
  Country: FR (occurrence: FR)
  Receive Date: 20140318
  Receipt Date: 20140318
  Transmission Date: 20141002
  Serious: Yes (Hospitalization)
  Sender: FDA-Public Use
  Company Number: FR-B.I. PHARMACEUTICALS,INC./RIDGEFIELD-2014-BI-10971FF

PATIENT
  Age: 67 Year
  Sex: Male

DRUGS (4)
  1. PRADAXA [Suspect]
     Indication: ATRIAL FIBRILLATION
     Dosage: 300 MG
     Route: 048
     Dates: start: 201208
  2. ACEBUTALOL 200 MG [Concomitant]
     Dosage: STRENGTH: 200MG
     Route: 065
  3. NISISCO 160 MG/25 MG [Concomitant]
     Dosage: STRENGTH: 160MG/25MG
     Route: 065
  4. ZANIDIP 10 MG [Concomitant]
     Dosage: STRENGTH: 10MG
     Route: 065

REACTIONS (1)
  - Extremity necrosis [Unknown]
